FAERS Safety Report 7370108-X (Version None)
Quarter: 2011Q1

REPORT INFORMATION
  Report Type: 
  Country: None (occurrence: None)
  Receive Date: 20110323
  Receipt Date: 20110310
  Transmission Date: 20110831
  Serious: Yes (Hospitalization)
  Sender: FDA-Public Use
  Company Number: PHHY2011TR19751

PATIENT

DRUGS (1)
  1. VOLTAREN [Suspect]

REACTIONS (1)
  - SHOCK [None]
